FAERS Safety Report 5311131-6 (Version None)
Quarter: 2007Q2

REPORT INFORMATION
  Report Type: 
  Country: None (occurrence: None)
  Receive Date: 20070423
  Receipt Date: 20070411
  Transmission Date: 20071010
  Serious: Yes (Life-Threatening)
  Sender: FDA-Public Use
  Company Number: GXKR2007DE03306

PATIENT
  Age: 88 Year
  Sex: Female
  Weight: 62 kg

DRUGS (3)
  1. MONO-EMBOLEX 8000 IE (CERTOPARIN SODIUM) UNKNOWN, 8000IU [Suspect]
     Indication: ATRIAL FIBRILLATION
     Dosage: 0.8 ML, BID, SUBCUTANEOUS
     Route: 058
     Dates: start: 20070320, end: 20070323
  2. ACETYLSALICYLIC ACID SRT [Suspect]
     Indication: ATRIAL FIBRILLATION
     Dosage: 50 MG, BID, ORAL
     Route: 048
     Dates: start: 20070322, end: 20070328
  3. BELOC-ZOC MITE (METOPROLOL SUCCINATE) [Concomitant]

REACTIONS (20)
  - ABDOMINAL HAEMATOMA [None]
  - ABDOMINAL PAIN [None]
  - ACTIVATED PARTIAL THROMBOPLASTIN TIME PROLONGED [None]
  - ANTITHROMBIN III DECREASED [None]
  - BLOOD ALBUMIN DECREASED [None]
  - BLOOD CALCIUM DECREASED [None]
  - BLOOD CREATININE INCREASED [None]
  - BLOOD PRESSURE DECREASED [None]
  - BLOOD UREA INCREASED [None]
  - COLD SWEAT [None]
  - HAEMATOCRIT DECREASED [None]
  - HAEMOGLOBIN DECREASED [None]
  - LYMPHOCYTE PERCENTAGE DECREASED [None]
  - MEAN CELL HAEMOGLOBIN CONCENTRATION DECREASED [None]
  - MEAN CELL HAEMOGLOBIN DECREASED [None]
  - NEUTROPHIL PERCENTAGE INCREASED [None]
  - PLATELET COUNT DECREASED [None]
  - PROTEIN TOTAL INCREASED [None]
  - RED BLOOD CELL COUNT DECREASED [None]
  - SHOCK HAEMORRHAGIC [None]
